FAERS Safety Report 6394383-3 (Version None)
Quarter: 2009Q4

REPORT INFORMATION
  Report Type: 
  Country: None (occurrence: None)
  Receive Date: 20091008
  Receipt Date: 20090928
  Transmission Date: 20100525
  Serious: Yes (Life-Threatening, Hospitalization)
  Sender: FDA-Public Use
  Company Number: CA-BAXTER-2009BH014573

PATIENT
  Age: 51 Year
  Sex: Male
  Weight: 61 kg

DRUGS (5)
  1. EXTRANEAL [Suspect]
     Indication: DIABETES MELLITUS
     Route: 033
     Dates: start: 20041224, end: 20090901
  2. EXTRANEAL [Suspect]
     Route: 033
     Dates: start: 20030501, end: 20041224
  3. DIANEAL [Suspect]
     Indication: DIABETES MELLITUS
     Route: 033
     Dates: start: 20041201, end: 20090901
  4. MEDICATIONS (UNSPECIFIED) [Concomitant]
     Indication: DRUG USE FOR UNKNOWN INDICATION
     Route: 048
  5. INSULIN [Concomitant]
     Indication: DRUG USE FOR UNKNOWN INDICATION
     Route: 058

REACTIONS (2)
  - CARDIAC ARREST [None]
  - PERITONITIS BACTERIAL [None]
